FAERS Safety Report 17022639 (Version 1)
Quarter: 2019Q4

REPORT INFORMATION
  Report Type: Spontaneous
  Country: NL (occurrence: NL)
  Receive Date: 20191112
  Receipt Date: 20191112
  Transmission Date: 20200122
  Serious: Yes (Other)
  Sender: FDA-Public Use
  Company Number: NL-MYLANLABS-2019M1108236

PATIENT
  Age: 55 Year
  Sex: Male
  Weight: 67 kg

DRUGS (4)
  1. GALANTAMINE. [Suspect]
     Active Substance: GALANTAMINE
     Dosage: 16 MILLIGRAM, QD
     Route: 048
     Dates: start: 201807
  2. GALANTAMINE. [Suspect]
     Active Substance: GALANTAMINE
     Indication: DEMENTIA ALZHEIMER^S TYPE
     Dosage: 16 MILLIGRAM, QD
     Route: 048
  3. GALANTAMINE. [Suspect]
     Active Substance: GALANTAMINE
     Dosage: 8 MILLIGRAM, QD
     Route: 048
     Dates: start: 201804
  4. GALANTAMINE. [Suspect]
     Active Substance: GALANTAMINE
     Dosage: 24 MILLIGRAM, QD
     Route: 048

REACTIONS (5)
  - Vomiting [Unknown]
  - Nausea [Unknown]
  - Vision blurred [Unknown]
  - Loss of consciousness [Recovered/Resolved]
  - Decreased appetite [Unknown]

NARRATIVE: CASE EVENT DATE: 20180720
